FAERS Safety Report 21424266 (Version 2)
Quarter: 2022Q4

REPORT INFORMATION
  Report Type: Report from Study
  Country: AR (occurrence: AR)
  Receive Date: 20221007
  Receipt Date: 20221017
  Transmission Date: 20230113
  Serious: Yes (Other)
  Sender: FDA-Public Use
  Company Number: AR-002147023-PHHY2019AR076986

PATIENT

DRUGS (11)
  1. RUXOLITINIB [Suspect]
     Active Substance: RUXOLITINIB
     Indication: Myelofibrosis
     Dosage: 10 MG, BID
     Route: 065
     Dates: start: 20180117
  2. RUXOLITINIB [Suspect]
     Active Substance: RUXOLITINIB
     Dosage: 15 MG, BID
     Route: 065
     Dates: start: 20181017
  3. RUXOLITINIB [Suspect]
     Active Substance: RUXOLITINIB
     Dosage: 10 MG (1 TABLET) IN MORNING AND 20 MG (2 TABLET) AT NIGHT
     Route: 065
  4. RUXOLITINIB [Suspect]
     Active Substance: RUXOLITINIB
     Dosage: 2 DF, QD (10 MG 2 TABLETS DAILY)
     Route: 065
  5. RUXOLITINIB [Suspect]
     Active Substance: RUXOLITINIB
     Dosage: 1 DF, QD (10 MG DAILY)
     Route: 065
  6. RUXOLITINIB [Suspect]
     Active Substance: RUXOLITINIB
     Dosage: 20 MG, BID
     Route: 048
     Dates: start: 20181017
  7. RUXOLITINIB [Suspect]
     Active Substance: RUXOLITINIB
     Dosage: 20 MG, QD
     Route: 048
     Dates: start: 20181017
  8. RUXOLITINIB [Suspect]
     Active Substance: RUXOLITINIB
     Dosage: 10 MG
     Route: 048
  9. RUXOLITINIB [Suspect]
     Active Substance: RUXOLITINIB
     Dosage: 30 MG, BID
     Route: 048
     Dates: start: 20181017
  10. RUXOLITINIB [Suspect]
     Active Substance: RUXOLITINIB
     Dosage: 30 MG, QD
     Route: 048
     Dates: start: 20181017
  11. RUXOLITINIB [Suspect]
     Active Substance: RUXOLITINIB
     Dosage: 10 MG, QD
     Route: 048
     Dates: start: 20181017

REACTIONS (16)
  - Agitation [Unknown]
  - Anaemia [Unknown]
  - Liver disorder [Unknown]
  - Inflammation [Unknown]
  - Inappropriate schedule of product administration [Unknown]
  - Asthenia [Unknown]
  - Leukocytosis [Unknown]
  - Pain [Unknown]
  - Platelet count decreased [Recovering/Resolving]
  - Product dose omission issue [Unknown]
  - Splenomegaly [Unknown]
  - Night sweats [Unknown]
  - Hyperhidrosis [Unknown]
  - Fatigue [Unknown]
  - Tremor [Unknown]
  - Malaise [Unknown]

NARRATIVE: CASE EVENT DATE: 20181017
